FAERS Safety Report 5107649-1 (Version None)
Quarter: 2006Q3

REPORT INFORMATION
  Report Type: 
  Country: None (occurrence: None)
  Receive Date: 20060914
  Receipt Date: 20060905
  Transmission Date: 20061208
  Serious: Yes (Death)
  Sender: FDA-Public Use
  Company Number: 2006107745

PATIENT
  Age: 45 Year
  Sex: Female

DRUGS (3)
  1. DIPHENHYDRAMINE HCL [Suspect]
     Dosage: ORAL
     Route: 048
  2. CHLOROQUINE (CHLOROQUINE) [Suspect]
  3. ETHANOL (ETHANOL) [Suspect]

REACTIONS (4)
  - BLOOD ALCOHOL INCREASED [None]
  - COMPLETED SUICIDE [None]
  - POISONING [None]
  - TOXICOLOGIC TEST ABNORMAL [None]
